FAERS Safety Report 12581148 (Version 2)
Quarter: 2016Q3

REPORT INFORMATION
  Report Type: Report from Study
  Country: CO (occurrence: CO)
  Receive Date: 20160721
  Receipt Date: 20160727
  Transmission Date: 20161109
  Serious: Yes (Hospitalization, Disabling)
  Sender: FDA-Public Use
  Company Number: CO-009507513-1607COL008299

PATIENT
  Age: 44 Year
  Sex: Male

DRUGS (1)
  1. ISENTRESS [Suspect]
     Active Substance: RALTEGRAVIR POTASSIUM
     Indication: HIV INFECTION
     Dosage: 400 MG, TWICE PER DAY
     Route: 048

REACTIONS (2)
  - Drug dose omission [Unknown]
  - Toxoplasmosis [Not Recovered/Not Resolved]

NARRATIVE: CASE EVENT DATE: 2016
